FAERS Safety Report 4356698-X (Version None)
Quarter: 2004Q2

REPORT INFORMATION
  Report Type: 
  Country: None (occurrence: None)
  Receive Date: 20040511
  Receipt Date: 20040511
  Transmission Date: 20050107
  Serious: No
  Sender: FDA-Public Use
  Company Number: None

PATIENT
  Sex: Male

DRUGS (2)
  1. FUROSEMIDE 20 MG MYLAN [Suspect]
     Dosage: 1 QD ORAL
     Route: 048
     Dates: start: 20040406, end: 20040502
  2. FUROSEMIDE 20 MG SANDOZ-GENEVA GENERICS [Suspect]
     Dosage: 1 QD ORAL
     Route: 048
     Dates: start: 20040504, end: 20040510

REACTIONS (3)
  - DRUG INEFFECTIVE [None]
  - PHARMACEUTICAL PRODUCT COMPLAINT [None]
  - WEIGHT DECREASED [None]
